FAERS Safety Report 6771655-1 (Version None)
Quarter: 2010Q2

REPORT INFORMATION
  Report Type: 
  Country: None (occurrence: None)
  Receive Date: 20100616
  Receipt Date: 20100604
  Transmission Date: 20101027
  Serious: Yes (Hospitalization)
  Sender: FDA-Public Use
  Company Number: PHHY2010MX36895

PATIENT
  Age: 34 Year
  Sex: Female

DRUGS (1)
  1. ZELMAC [Suspect]
     Indication: IRRITABLE BOWEL SYNDROME
     Dosage: 2 TABLETS OF 6 MG PER DAY
     Route: 048
     Dates: start: 20100501, end: 20100501

REACTIONS (5)
  - ABDOMINAL PAIN UPPER [None]
  - BACK PAIN [None]
  - GAIT DISTURBANCE [None]
  - GALLBLADDER DISORDER [None]
  - MUSCULOSKELETAL PAIN [None]
